FAERS Safety Report 20411056 (Version 1)
Quarter: 2022Q1

REPORT INFORMATION
  Report Type: Spontaneous
  Country: US (occurrence: None)
  Receive Date: 20220201
  Receipt Date: 20220201
  Transmission Date: 20220423
  Serious: Yes (unspecified)
  Sender: FDA-Public Use
  Company Number: None

PATIENT
  Age: 71 Year
  Sex: Male
  Weight: 105.75 kg

DRUGS (1)
  1. FLUOROURACIL [Suspect]
     Active Substance: FLUOROURACIL
     Dosage: FREQUENCY : AT BEDTIME;?
     Route: 061
     Dates: start: 20220114, end: 20220118

REACTIONS (6)
  - Wrong product administered [None]
  - Product label confusion [None]
  - Scrotal erythema [None]
  - Scrotal pain [None]
  - Drug ineffective [None]
  - Skin lesion [None]

NARRATIVE: CASE EVENT DATE: 20220118
